FAERS Safety Report 10026444 (Version 1)
Quarter: 2014Q1

REPORT INFORMATION
  Report Type: Spontaneous
  Country: IT (occurrence: IT)
  Receive Date: 20140321
  Receipt Date: 20140321
  Transmission Date: 20141002
  Serious: Yes (Other)
  Sender: FDA-Public Use
  Company Number: PHHY2014IT032480

PATIENT
  Age: 54 Year
  Sex: Male

DRUGS (1)
  1. AMOXICILLIN [Suspect]
     Indication: INFLUENZA
     Dosage: 1 G, ONCE/SINGLE
     Route: 048
     Dates: start: 20140305, end: 20140305

REACTIONS (2)
  - Tremor [Recovering/Resolving]
  - Erythema [Recovering/Resolving]
